FAERS Safety Report 10913527 (Version 1)
Quarter: 2015Q1

REPORT INFORMATION
  Report Type: Spontaneous
  Country: GB (occurrence: GB)
  Receive Date: 20150313
  Receipt Date: 20150313
  Transmission Date: 20150721
  Serious: Yes (Death, Hospitalization)
  Sender: FDA-Public Use
  Company Number: GB-INCYTE CORPORATION-2015IN000945

PATIENT
  Age: 77 Year
  Sex: Female

DRUGS (2)
  1. INC424 [Suspect]
     Active Substance: RUXOLITINIB
     Indication: MYELOFIBROSIS
  2. INC424 [Suspect]
     Active Substance: RUXOLITINIB
     Indication: SPLENOMEGALY
     Dosage: UNKNOWN
     Route: 065

REACTIONS (4)
  - Splenomegaly [Unknown]
  - Acute febrile neutrophilic dermatosis [Fatal]
  - Drug ineffective [Unknown]
  - Staphylococcal skin infection [Unknown]
